FAERS Safety Report 7584535-9 (Version None)
Quarter: 2011Q2

REPORT INFORMATION
  Report Type: 
  Country: None (occurrence: None)
  Receive Date: 20110630
  Receipt Date: 20110628
  Transmission Date: 20111010
  Serious: Yes (Other)
  Sender: FDA-Public Use
  Company Number: JP-PFIZER INC-2011144388

PATIENT

DRUGS (1)
  1. LINCOCIN [Suspect]

REACTIONS (1)
  - HEPATITIS ACUTE [None]
